FAERS Safety Report 10434694 (Version 1)
Quarter: 2014Q2

REPORT INFORMATION
  Report Type: Spontaneous
  Country: US (occurrence: None)
  Receive Date: 20140530
  Receipt Date: 20140530
  Transmission Date: 20141212
  Serious: Yes (Other)
  Sender: FDA-Public Use
  Company Number: 2012031338

PATIENT
  Age: 11 Year
  Sex: Female

DRUGS (1)
  1. HIZENTRA (IMMUNOGLOBULIN HUMAN NORMAL) [Suspect]
     Indication: IMMUNODEFICIENCY COMMON VARIABLE
     Dosage: 1X/WEEK,
     Route: 058
     Dates: start: 201108

REACTIONS (4)
  - Meningitis aseptic [None]
  - Migraine [None]
  - Vomiting [None]
  - Eye pain [None]
